FAERS Safety Report 15079905 (Version 1)
Quarter: 2018Q2

REPORT INFORMATION
  Report Type: Spontaneous
  Country: US (occurrence: US)
  Receive Date: 20180607
  Receipt Date: 20180607
  Transmission Date: 20180711
  Serious: Yes (Other)
  Sender: FDA-Public Use
  Company Number: None

PATIENT
  Age: 76 Year
  Sex: Male
  Weight: 78.3 kg

DRUGS (8)
  1. SITAGLIPTION [Concomitant]
  2. ROSUVASTATIN. [Concomitant]
     Active Substance: ROSUVASTATIN
  3. COENZYME Q10 [Concomitant]
     Active Substance: UBIDECARENONE
  4. METFORMIN [Concomitant]
     Active Substance: METFORMIN HYDROCHLORIDE
  5. VITAMIN D [Concomitant]
     Active Substance: CHOLECALCIFEROL
  6. FISH OIL [Concomitant]
     Active Substance: FISH OIL
  7. ASPIRIN. [Concomitant]
     Active Substance: ASPIRIN
  8. TAMSULOSIN 0.4 MG [Suspect]
     Active Substance: TAMSULOSIN
     Indication: BENIGN PROSTATIC HYPERPLASIA
     Dosage: ?          QUANTITY:1 CAPSULE(S);?
     Route: 048
     Dates: start: 20180511, end: 20180525

REACTIONS (6)
  - Oedema [None]
  - Vision blurred [None]
  - Erythema [None]
  - Eyelid sensory disorder [None]
  - Myalgia [None]
  - Drug hypersensitivity [None]

NARRATIVE: CASE EVENT DATE: 20180526
